FAERS Safety Report 26053426 (Version 1)
Quarter: 2025Q4

REPORT INFORMATION
  Report Type: Spontaneous
  Country: US (occurrence: US)
  Receive Date: 20251117
  Receipt Date: 20251117
  Transmission Date: 20260117
  Serious: No
  Sender: JOHNSON AND JOHNSON
  Company Number: US-JNJFOC-20251152123

PATIENT
  Age: 68 Year
  Sex: Male

DRUGS (1)
  1. SIMPONI [Suspect]
     Active Substance: GOLIMUMAB
     Indication: Ankylosing spondylitis
     Route: 058
     Dates: start: 2006

REACTIONS (6)
  - Off label use [Unknown]
  - Contusion [Unknown]
  - Myalgia [Unknown]
  - Burning sensation [Unknown]
  - Fatigue [Unknown]
  - Hypertension [Unknown]
